FAERS Safety Report 23949722 (Version 1)
Quarter: 2024Q2

REPORT INFORMATION
  Report Type: Spontaneous
  Country: FR (occurrence: FR)
  Receive Date: 20240607
  Receipt Date: 20240607
  Transmission Date: 20240716
  Serious: Yes (Hospitalization)
  Sender: FDA-Public Use
  Company Number: FR-AFSSAPS-TS2024000616

PATIENT
  Age: 78 Year
  Sex: Male
  Weight: 85 kg

DRUGS (3)
  1. TERBINAFINE [Suspect]
     Active Substance: TERBINAFINE
     Indication: Onychomycosis
     Dosage: 250 MILLIGRAM, ONCE A DAY
     Route: 048
     Dates: start: 20240430, end: 20240507
  2. AUGMENTIN [Suspect]
     Active Substance: AMOXICILLIN\CLAVULANATE POTASSIUM
     Indication: Respiratory tract infection
     Dosage: 1 DOSAGE FORM, 3 TIMES A DAY
     Route: 048
     Dates: start: 20240430, end: 20240507
  3. CODEINE [Suspect]
     Active Substance: CODEINE
     Indication: Cough
     Dosage: UNK
     Route: 048
     Dates: start: 20240430

REACTIONS (2)
  - Spinal pain [Recovering/Resolving]
  - Myalgia [Recovering/Resolving]

NARRATIVE: CASE EVENT DATE: 20240501
